FAERS Safety Report 23549865 (Version 1)
Quarter: 2024Q1

REPORT INFORMATION
  Report Type: Spontaneous
  Country: US (occurrence: US)
  Receive Date: 20240221
  Receipt Date: 20240221
  Transmission Date: 20240410
  Serious: No
  Sender: FDA-Public Use
  Company Number: US-PERRIGO-23US011804

PATIENT
  Age: 57 Year
  Sex: Female
  Weight: 81.633 kg

DRUGS (2)
  1. FAMOTIDINE, CALCIUM CARBONATE, AND MAGNESIUM HYDROXIDE [Suspect]
     Active Substance: CALCIUM CARBONATE\FAMOTIDINE\MAGNESIUM HYDROXIDE
     Indication: Dyspepsia
     Dosage: 1 TABLET, SINGLE
     Route: 048
     Dates: start: 20231001, end: 20231001
  2. METHOCARBAMOL [Concomitant]
     Active Substance: METHOCARBAMOL
     Indication: Muscle relaxant therapy
     Dosage: UNK
     Route: 065

REACTIONS (1)
  - Product after taste [Recovered/Resolved]

NARRATIVE: CASE EVENT DATE: 20231001
